FAERS Safety Report 4615254-6 (Version None)
Quarter: 2005Q1

REPORT INFORMATION
  Report Type: 
  Country: None (occurrence: None)
  Receive Date: 20050317
  Receipt Date: 20050309
  Transmission Date: 20050727
  Serious: Yes (Other)
  Sender: FDA-Public Use
  Company Number: GBWYE496911MAR05

PATIENT
  Age: 66 Year
  Sex: Female

DRUGS (4)
  1. EFFEXOR [Suspect]
     Indication: DEPRESSION
     Dosage: 75 MG 2X PER 1 DAY ORAL
     Route: 048
     Dates: start: 20040708, end: 20050218
  2. DIAZEPAM [Concomitant]
  3. MIRTAZAPINE [Concomitant]
  4. CANDESARTAN                 (CANDESARTAN) [Concomitant]

REACTIONS (7)
  - DYSPNOEA [None]
  - PHARYNGEAL ERYTHEMA [None]
  - PHARYNGOLARYNGEAL PAIN [None]
  - RASH ERYTHEMATOUS [None]
  - RASH PRURITIC [None]
  - THROAT IRRITATION [None]
  - TONGUE ULCERATION [None]
